FAERS Safety Report 8633422 (Version 2)
Quarter: 2013Q4

REPORT INFORMATION
  Report Type: Report from Study
  Country: FR (occurrence: FR)
  Receive Date: 20120625
  Receipt Date: 20131115
  Transmission Date: 20140711
  Serious: Yes (Other)
  Sender: FDA-Public Use
  Company Number: FR-ROCHE-709425

PATIENT
  Sex: 0

DRUGS (4)
  1. RITUXIMAB [Suspect]
     Indication: CHRONIC LYMPHOCYTIC LEUKAEMIA
     Dosage: LOADING DOSE ON DAY 0
     Route: 042
  2. RITUXIMAB [Suspect]
     Dosage: ON DAY 1 AT ALL SUBSEQUENT CYCLES
     Route: 042
  3. FLUDARABINE [Suspect]
     Indication: CHRONIC LYMPHOCYTIC LEUKAEMIA
     Dosage: ON DAY 1-3
     Route: 048
  4. CYCLOPHOSPHAMIDE [Suspect]
     Indication: CHRONIC LYMPHOCYTIC LEUKAEMIA
     Dosage: ON DAY 1-3
     Route: 048

REACTIONS (19)
  - Neutropenia [Unknown]
  - Febrile neutropenia [Unknown]
  - Aplasia pure red cell [Unknown]
  - Pneumonia pneumococcal [Unknown]
  - Erysipelas [Unknown]
  - Bronchitis [Unknown]
  - Acute pulmonary oedema [Unknown]
  - Tumour lysis syndrome [Unknown]
  - Renal cancer [Unknown]
  - Colon cancer metastatic [Unknown]
  - Pleural effusion [Unknown]
  - Rash generalised [Unknown]
  - Cytokine release syndrome [Unknown]
  - Gastric ulcer [Unknown]
  - Bile duct cancer [Unknown]
  - Myelodysplastic syndrome [Unknown]
  - Transient ischaemic attack [Unknown]
  - Lung adenocarcinoma [Unknown]
  - Prostate cancer [Unknown]
